FAERS Safety Report 5605835-5 (Version None)
Quarter: 2008Q1

REPORT INFORMATION
  Report Type: 
  Country: None (occurrence: None)
  Receive Date: 20080129
  Receipt Date: 20080123
  Transmission Date: 20080703
  Serious: Yes (Hospitalization)
  Sender: FDA-Public Use
  Company Number: US-BAXTER-2008BH000568

PATIENT
  Age: 58 Year

DRUGS (2)
  1. HEPARIN SODIUM [Suspect]
     Indication: THROMBOSIS PROPHYLAXIS
     Route: 040
     Dates: start: 20071123
  2. HEPARIN SODIUM [Suspect]
     Route: 042
     Dates: start: 20071123

REACTIONS (3)
  - FEELING COLD [None]
  - SERRATIA INFECTION [None]
  - VOMITING [None]
